FAERS Safety Report 18385014 (Version 1)
Quarter: 2020Q4

REPORT INFORMATION
  Report Type: Report from Study
  Country: None (occurrence: US)
  Receive Date: 20201015
  Receipt Date: 20201015
  Transmission Date: 20210114
  Serious: Yes (Other)
  Sender: FDA-Public Use
  Company Number: US-ABBVIE-20K-163-3602952-00

PATIENT
  Sex: Female

DRUGS (1)
  1. RINVOQ [Suspect]
     Active Substance: UPADACITINIB
     Indication: RHEUMATOID ARTHRITIS
     Dosage: ER
     Route: 048
     Dates: start: 20200809

REACTIONS (7)
  - Loss of consciousness [Unknown]
  - Nausea [Recovered/Resolved]
  - Blood potassium decreased [Unknown]
  - Nasal discomfort [Unknown]
  - Scratch [Unknown]
  - Pain [Recovering/Resolving]
  - Pyrexia [Unknown]

NARRATIVE: CASE EVENT DATE: 2020
